APPROVED DRUG PRODUCT: ANDROID-F
Active Ingredient: FLUOXYMESTERONE
Strength: 10MG
Dosage Form/Route: TABLET;ORAL
Application: A087196 | Product #001
Applicant: VALEANT PHARMACEUTICALS INTERNATIONAL
Approved: Approved Prior to Jan 1, 1982 | RLD: No | RS: No | Type: DISCN